FAERS Safety Report 9853976 (Version 2)
Quarter: 2014Q1

REPORT INFORMATION
  Report Type: Spontaneous
  Country: US (occurrence: US)
  Receive Date: 20140129
  Receipt Date: 20140205
  Transmission Date: 20141002
  Serious: No
  Sender: FDA-Public Use
  Company Number: US-PFIZER INC-2014023535

PATIENT
  Age: 50 Year
  Sex: Female
  Weight: 62.13 kg

DRUGS (2)
  1. ADVIL [Suspect]
     Indication: MUSCLE SPASMS
     Dosage: 200 MG, THREE TIMES A DAY
     Route: 048
     Dates: start: 20140121, end: 20140122
  2. ADVIL [Suspect]
     Indication: PAIN
     Dosage: 200 MG, FOUR TIMES A DAY
     Route: 048
     Dates: start: 20140122

REACTIONS (4)
  - Extra dose administered [Unknown]
  - Drug effect incomplete [Unknown]
  - Drug effect delayed [Unknown]
  - Drug ineffective [Unknown]
